FAERS Safety Report 9189087 (Version 2)
Quarter: 2013Q2

REPORT INFORMATION
  Report Type: Report from Study
  Country: JP (occurrence: JP)
  Receive Date: 20130326
  Receipt Date: 20130418
  Transmission Date: 20140414
  Serious: Yes (Other)
  Sender: FDA-Public Use
  Company Number: JP-OTSUKA-JP-2013-10669

PATIENT
  Age: 77 Year
  Sex: Female
  Weight: 49 kg

DRUGS (16)
  1. SAMSCA [Suspect]
     Indication: FLUID RETENTION
     Dosage: 15 MG MILLIGRAM(S), QAM
     Route: 048
     Dates: start: 20121226, end: 20130104
  2. LASIX [Concomitant]
     Indication: CARDIAC FAILURE
     Dosage: 20 MG MILLIGRAM(S), DAILY DOSE
     Route: 042
     Dates: end: 20121213
  3. CRESTOR [Concomitant]
     Dosage: 5 MG MILLIGRAM(S), DAILY DOSE
     Route: 048
  4. CARDENALIN [Concomitant]
     Dosage: 6 MG MILLIGRAM(S), DAILY DOSE
     Route: 048
  5. BLOPRESS [Concomitant]
     Dosage: 8 MG MILLIGRAM(S), DAILY DOSE
     Route: 048
  6. ADALAT CR [Concomitant]
     Dosage: 80 MG MILLIGRAM(S), DAILY DOSE
     Route: 048
  7. BIO-THREE [Concomitant]
     Indication: PROPHYLAXIS
     Dosage: 3 DF DOSAGE FORM, DAILY DOSE
     Route: 048
  8. PARIET [Concomitant]
     Dosage: 10 MG MILLIGRAM(S), DAILY DOSE
     Route: 048
  9. REZALTAS COMBINATION [Concomitant]
     Dosage: 1 DF DOSAGE FORM, DAILY DOSE
     Route: 048
  10. PERDIPINE [Concomitant]
     Dosage: 72 MG MILLIGRAM(S), DAILY DOSE
     Route: 041
  11. HANP [Concomitant]
     Indication: CARDIAC FAILURE
     Dosage: 1680 MCG, DAILY DOSE
     Route: 041
  12. HEPARIN [Concomitant]
     Dosage: 12000 IU, DAILY DOSE
     Route: 041
  13. MYOCOR [Concomitant]
     Indication: CARDIAC FAILURE
     Dosage: 360 MG MILLIGRAM(S), DAILY DOSE
     Route: 041
  14. LASIX [Concomitant]
     Indication: CARDIAC FAILURE
     Dosage: 41.8 MG MILLIGRAM(S), DAILY DOSE
     Route: 041
  15. SEISHOKU [Concomitant]
     Dosage: UNK
     Route: 041
  16. ARTIST [Concomitant]
     Indication: CARDIAC FAILURE
     Dosage: 20 MG MILLIGRAM(S), DAILY DOSE
     Route: 048

REACTIONS (2)
  - Blood urea increased [Unknown]
  - Oropharyngeal pain [Recovered/Resolved]
